FAERS Safety Report 6456904-1 (Version None)
Quarter: 2009Q4

REPORT INFORMATION
  Report Type: 
  Country: None (occurrence: None)
  Receive Date: 20091120
  Receipt Date: 20091109
  Transmission Date: 20100525
  Serious: Yes (Hospitalization)
  Sender: FDA-Public Use
  Company Number: 2009AL007169

PATIENT
  Age: 56 Year
  Sex: Male

DRUGS (14)
  1. CARVEDILOL                               (AELLC) [Suspect]
     Indication: ANGINA PECTORIS
     Dosage: 12.5 MG;BID
  2. DILTIAZEM HYDROCHLORIDE [Suspect]
     Dosage: 60 MG; BID
  3. CYCLOSPORINE [Concomitant]
  4. SIMVASTATIN [Concomitant]
  5. RANOLAZINE [Concomitant]
  6. METOPROLOL [Concomitant]
  7. FUROSEMIDE [Concomitant]
  8. TAMSULOSIN [Concomitant]
  9. SERTRALINE HCL [Concomitant]
  10. FLUDROCORTISONE [Concomitant]
  11. CLONIDINE [Concomitant]
  12. ESOMEPRAZOLE [Concomitant]
  13. CLOPIDOGREL [Concomitant]
  14. INSULIN GLARGINE [Concomitant]

REACTIONS (3)
  - BLOOD CREATINE INCREASED [None]
  - DRUG INTERACTION [None]
  - RHABDOMYOLYSIS [None]
